FAERS Safety Report 7412175-0 (Version None)
Quarter: 2011Q2

REPORT INFORMATION
  Report Type: 
  Country: None (occurrence: None)
  Receive Date: 20110413
  Receipt Date: 20110404
  Transmission Date: 20111010
  Serious: Yes (Hospitalization, Other)
  Sender: FDA-Public Use
  Company Number: BR-SANOFI-AVENTIS-2011SA016170

PATIENT
  Age: 47 Year
  Sex: Female

DRUGS (5)
  1. APIDRA [Suspect]
     Dosage: ACCORDING TO BLOOD SUGAR
     Route: 058
     Dates: start: 20110201
  2. AUTOPEN 24 [Suspect]
  3. AUTOPEN 24 [Suspect]
  4. LANTUS [Suspect]
     Route: 058
     Dates: start: 20101201
  5. CALCIUM CHLORIDE DIHYDRATE/GELATIN/SODIUM CHLORIDE [Suspect]
     Indication: PANCREATITIS

REACTIONS (11)
  - TONGUE DRY [None]
  - SWELLING [None]
  - FATIGUE [None]
  - WRONG DRUG ADMINISTERED [None]
  - HYPERGLYCAEMIA [None]
  - CHEST PAIN [None]
  - HYPOGLYCAEMIA [None]
  - TONGUE DISCOLOURATION [None]
  - PANCREATITIS ACUTE [None]
  - VOMITING [None]
  - LOSS OF CONSCIOUSNESS [None]
